FAERS Safety Report 6890744-4 (Version None)
Quarter: 2010Q3

REPORT INFORMATION
  Report Type: 
  Country: None (occurrence: None)
  Receive Date: 20100731
  Receipt Date: 20090303
  Transmission Date: 20110219
  Serious: No
  Sender: FDA-Public Use
  Company Number: US-PFIZER INC-2009177580

PATIENT
  Sex: Male

DRUGS (3)
  1. LIPITOR [Suspect]
     Dosage: UNK
     Route: 048
     Dates: start: 20050101, end: 20050101
  2. CELEBREX [Concomitant]
     Dosage: 200 MG, 2X/DAY
     Dates: start: 20040101
  3. MONTELUKAST SODIUM [Concomitant]
     Dosage: 10 MG, 1X/DAY
     Dates: start: 20050101, end: 20070401

REACTIONS (2)
  - ARTHRALGIA [None]
  - OEDEMA PERIPHERAL [None]
